FAERS Safety Report 9347974 (Version 1)
Quarter: 2013Q2

REPORT INFORMATION
  Report Type: Spontaneous
  Country: CN (occurrence: CN)
  Receive Date: 20130614
  Receipt Date: 20130614
  Transmission Date: 20140414
  Serious: Yes (Hospitalization)
  Sender: FDA-Public Use
  Company Number: CN-JNJFOC-20130606038

PATIENT
  Age: 8 Month
  Sex: Male

DRUGS (3)
  1. TYLENOL SUSPENSION LIQUID [Suspect]
     Indication: PYREXIA
     Dosage: 0.8ML TWICE A DAY
     Route: 048
     Dates: start: 20121018, end: 20121021
  2. AMOXICILLIN [Concomitant]
     Route: 048
     Dates: start: 20121018, end: 20121021
  3. TRADITIONAL CHINESE MEDICINE [Concomitant]
     Dosage: HALF A SACHET
     Route: 048
     Dates: start: 20121018, end: 20121021

REACTIONS (2)
  - Leukopenia [Recovered/Resolved]
  - Upper respiratory tract infection [Recovered/Resolved]
